FAERS Safety Report 7340139-4 (Version None)
Quarter: 2011Q1

REPORT INFORMATION
  Report Type: 
  Country: None (occurrence: None)
  Receive Date: 20110228
  Receipt Date: 20110214
  Transmission Date: 20110831
  Serious: Yes (Other)
  Sender: FDA-Public Use
  Company Number: B0701388A

PATIENT
  Sex: Female

DRUGS (4)
  1. LITHIUM CARBONATE [Suspect]
     Indication: BIPOLAR DISORDER
  2. VALPROATE SODIUM [Concomitant]
  3. ROPINIROLE HYDROCHLLORIDE (REQUIP XL) [Suspect]
     Indication: PARKINSONISM
  4. QUETIAPINE [Concomitant]

REACTIONS (13)
  - DIARRHOEA [None]
  - UNEVALUABLE EVENT [None]
  - POSTURE ABNORMAL [None]
  - INSOMNIA [None]
  - PSYCHOTIC DISORDER [None]
  - PERSECUTORY DELUSION [None]
  - DELUSION [None]
  - SALIVARY HYPERSECRETION [None]
  - HYPOKINESIA [None]
  - HALLUCINATION, AUDITORY [None]
  - PARKINSONISM [None]
  - BLUNTED AFFECT [None]
  - ANTIPSYCHOTIC DRUG LEVEL INCREASED [None]
